FAERS Safety Report 16069351 (Version 1)
Quarter: 2019Q1

REPORT INFORMATION
  Report Type: Report from Study
  Country: None (occurrence: TR)
  Receive Date: 20190313
  Receipt Date: 20190313
  Transmission Date: 20190418
  Serious: Yes (Other)
  Sender: FDA-Public Use
  Company Number: TR-ABBVIE-19S-161-2699966-00

PATIENT
  Sex: Female

DRUGS (1)
  1. DUODOPA [Suspect]
     Active Substance: CARBIDOPA\LEVODOPA
     Indication: PARKINSON^S DISEASE
     Dosage: MD (ML): 2.10 CD (ML): 2.40 ED (ML): 0.50
     Route: 050
     Dates: start: 20181203, end: 20190305

REACTIONS (1)
  - Multiple system atrophy [Not Recovered/Not Resolved]
